FAERS Safety Report 25593119 (Version 4)
Quarter: 2025Q3

REPORT INFORMATION
  Report Type: Report from Study
  Country: PR (occurrence: PR)
  Receive Date: 20250722
  Receipt Date: 20250813
  Transmission Date: 20251020
  Serious: Yes (Other)
  Sender: MALLINCKRODT
  Company Number: PR-MALLINCKRODT-MNK202504278

PATIENT
  Age: 57 Year
  Sex: Male

DRUGS (2)
  1. CORTICOTROPIN [Suspect]
     Active Substance: CORTICOTROPIN
     Indication: Multiple sclerosis
     Dates: start: 2006, end: 2022
  2. CORTICOTROPIN [Suspect]
     Active Substance: CORTICOTROPIN

REACTIONS (10)
  - Multiple sclerosis relapse [Unknown]
  - Syncope [Unknown]
  - Asthma [Unknown]
  - Fall [Unknown]
  - Haemorrhage [Unknown]
  - Eye injury [Unknown]
  - Face injury [Unknown]
  - Migraine [Unknown]
  - Aura [Unknown]
  - Sensitivity to weather change [Unknown]

NARRATIVE: CASE EVENT DATE: 20250401
